FAERS Safety Report 6073287-X (Version None)
Quarter: 2009Q1

REPORT INFORMATION
  Report Type: 
  Country: None (occurrence: None)
  Receive Date: 20090206
  Receipt Date: 20090202
  Transmission Date: 20090719
  Serious: Yes (Hospitalization)
  Sender: FDA-Public Use
  Company Number: STI-2009-00191

PATIENT
  Age: 14 Year
  Sex: Male

DRUGS (1)
  1. 516B CLINDOXYL GEL (CLINDAMYCIN + BENZOYL PEROXIDE) (BENZOYL PEROXIDE [Suspect]
     Indication: ACNE
     Dosage: (ONCE DAILY IN THE MORNING) TOPICAL
     Route: 061
     Dates: start: 20081128, end: 20090123

REACTIONS (10)
  - CHILLS [None]
  - DECREASED APPETITE [None]
  - DISORIENTATION [None]
  - DIZZINESS [None]
  - FEELING COLD [None]
  - IMMUNE SYSTEM DISORDER [None]
  - LOSS OF CONSCIOUSNESS [None]
  - PLATELET COUNT DECREASED [None]
  - SPLENOMEGALY [None]
  - VIRAL INFECTION [None]
